FAERS Safety Report 5600275-7 (Version None)
Quarter: 2007Q4

REPORT INFORMATION
  Report Type: 
  Country: None (occurrence: None)
  Receive Date: 20071226
  Receipt Date: 20070612
  Transmission Date: 20080405
  Serious: Yes (Hospitalization)
  Sender: FDA-Public Use
  Company Number: 238597

PATIENT
  Age: 52 Year
  Sex: Male

DRUGS (4)
  1. RAPTIVA [Suspect]
     Indication: PSORIASIS
     Dosage: 1.3 ML, 1/WEEK, SUBCUTANEOUS
     Route: 058
     Dates: start: 20060126, end: 20060401
  2. KLONOPIN [Concomitant]
  3. FAMVIR [Concomitant]
  4. ASPIRIN [Concomitant]

REACTIONS (2)
  - DRUG INEFFECTIVE [None]
  - PSORIASIS [None]
